FAERS Safety Report 10047521 (Version 1)
Quarter: 2014Q1

REPORT INFORMATION
  Report Type: Spontaneous
  Country: US (occurrence: None)
  Receive Date: 20140327
  Receipt Date: 20140327
  Transmission Date: 20141002
  Serious: Yes (Hospitalization)
  Sender: FDA-Public Use
  Company Number: UTC-046098

PATIENT
  Age: 60 Year
  Sex: Female
  Weight: 40.36 kg

DRUGS (3)
  1. REMODULIN [Suspect]
     Indication: COR PULMONALE CHRONIC
     Dosage: 47.52 UG/KG (0.33 UG/KG, 1 IN 1 MIN), INTRAVENOUS DRIP
     Dates: start: 20081117
  2. REVATIO (SILDENAFIL) [Concomitant]
  3. TRACLEER (BOSENTAN) [Concomitant]

REACTIONS (1)
  - Dyspnoea [None]
